FAERS Safety Report 7408782-1 (Version None)
Quarter: 2011Q2

REPORT INFORMATION
  Report Type: 
  Country: None (occurrence: None)
  Receive Date: 20110412
  Receipt Date: 20110405
  Transmission Date: 20111010
  Serious: Yes (Other)
  Sender: FDA-Public Use
  Company Number: US-SHIRE-ALL1-2011-00996

PATIENT
  Age: 14 Year
  Sex: Male
  Weight: 56.689 kg

DRUGS (6)
  1. INTUNIV [Suspect]
     Indication: PERSONALITY DISORDER
     Dosage: 2 MG, 1X/DAY:QD
     Route: 048
     Dates: start: 20110318, end: 20110403
  2. INTUNIV [Suspect]
     Dosage: 2 MG, 1X/DAY:QD
     Route: 048
     Dates: start: 20110405
  3. VYVANSE [Concomitant]
     Indication: ATTENTION DEFICIT/HYPERACTIVITY DISORDER
     Dosage: 70 MG, 1X/DAY:QD
     Route: 048
     Dates: end: 20110401
  4. INTUNIV [Suspect]
     Dosage: 1 MG, ONE DOSE
     Route: 048
     Dates: start: 20110403, end: 20110403
  5. INTUNIV [Suspect]
     Indication: ATTENTION DEFICIT/HYPERACTIVITY DISORDER
     Dosage: 1 MG, 1X/DAY:QD
     Route: 048
     Dates: start: 20110311, end: 20110317
  6. VYVANSE [Concomitant]
     Dosage: 70 MG, 1X/DAY:QD
     Route: 048
     Dates: start: 20110404

REACTIONS (9)
  - VIOLENCE-RELATED SYMPTOM [None]
  - HEADACHE [None]
  - INAPPROPRIATE SCHEDULE OF DRUG ADMINISTRATION [None]
  - PERSONALITY DISORDER [None]
  - CYANOSIS [None]
  - PERIPHERAL COLDNESS [None]
  - PARAESTHESIA [None]
  - FRUSTRATION [None]
  - AGITATION [None]
